FAERS Safety Report 6093757-8 (Version None)
Quarter: 2009Q1

REPORT INFORMATION
  Report Type: 
  Country: None (occurrence: None)
  Receive Date: 20090219
  Receipt Date: 20081020
  Transmission Date: 20090719
  Serious: No
  Sender: FDA-Public Use
  Company Number: WAES 0810USA03767

PATIENT
  Age: 63 Year
  Sex: Male

DRUGS (4)
  1. JANUVIA [Suspect]
     Dosage: 100 MG/DAILY/PO; 100 MG/DAILY/PO
     Route: 048
  2. JANUVIA [Suspect]
     Dosage: 100 MG/DAILY/PO; 100 MG/DAILY/PO
     Route: 048
  3. GLIPIZIDE [Concomitant]
  4. INSULIN [Concomitant]

REACTIONS (1)
  - CELLULITIS [None]
